FAERS Safety Report 6209705-3 (Version None)
Quarter: 2009Q2

REPORT INFORMATION
  Report Type: 
  Country: None (occurrence: None)
  Receive Date: 20090601
  Receipt Date: 20090526
  Transmission Date: 20091009
  Serious: Yes (Other)
  Sender: FDA-Public Use
  Company Number: TW-WYE-H09367409

PATIENT
  Sex: Male
  Weight: 71.1 kg

DRUGS (5)
  1. TORISEL [Suspect]
     Indication: RENAL CELL CARCINOMA
     Dosage: 1.2 ML/ 1 VIAL WEEKLY
     Route: 042
     Dates: start: 20081113, end: 20090507
  2. NAPROXEN [Concomitant]
     Indication: MUSCULOSKELETAL PAIN
     Route: 048
     Dates: start: 20090430
  3. TRAMADOL HCL [Concomitant]
     Indication: MUSCULOSKELETAL PAIN
     Route: 048
     Dates: start: 20090420
  4. BEVACIZUMAB [Suspect]
     Indication: RENAL CELL CARCINOMA
     Dosage: 400MG/ 1 VIAL EVERY OTHER WEEK
     Route: 042
     Dates: start: 20081113, end: 20090514
  5. MAGNESIUM OXIDE [Concomitant]
     Indication: PROPHYLAXIS
     Route: 048
     Dates: start: 20090507

REACTIONS (1)
  - PULMONARY TUBERCULOSIS [None]
